FAERS Safety Report 14159824 (Version 2)
Quarter: 2017Q4

REPORT INFORMATION
  Report Type: Spontaneous
  Country: US (occurrence: US)
  Receive Date: 20171103
  Receipt Date: 20171106
  Transmission Date: 20180321
  Serious: No
  Sender: FDA-Public Use
  Company Number: US-AMGEN-USASP2017085405

PATIENT
  Age: 64 Year
  Sex: Male

DRUGS (12)
  1. ZANTAC [Concomitant]
     Active Substance: RANITIDINE HYDROCHLORIDE
     Dosage: 300 MG, BID
  2. IRON [Concomitant]
     Active Substance: IRON
  3. CARDURA [Concomitant]
     Active Substance: DOXAZOSIN MESYLATE
     Dosage: 4 MG, BID
  4. ARANESP [Suspect]
     Active Substance: DARBEPOETIN ALFA
     Dosage: 150 MUG, UNK
     Route: 065
     Dates: start: 20170601
  5. VASOTEC [Concomitant]
     Active Substance: ENALAPRIL MALEATE
     Dosage: 10 MG, BID
  6. ARANESP [Suspect]
     Active Substance: DARBEPOETIN ALFA
     Dosage: 100 MUG, QWK
     Route: 065
     Dates: start: 20170427
  7. EPOGEN [Suspect]
     Active Substance: ERYTHROPOIETIN
     Indication: NEPHROGENIC ANAEMIA
     Dosage: UNK UNK, UNK
     Route: 065
     Dates: start: 2015
  8. ARANESP [Suspect]
     Active Substance: DARBEPOETIN ALFA
     Dosage: 125 MUG, QWK
     Route: 065
     Dates: start: 20170518
  9. ARANESP [Suspect]
     Active Substance: DARBEPOETIN ALFA
     Dosage: 200 MUG, UNK
     Route: 065
  10. PROCARDIA [Concomitant]
     Active Substance: NIFEDIPINE
     Dosage: 60 MG, BID
  11. ARANESP [Suspect]
     Active Substance: DARBEPOETIN ALFA
     Indication: NEPHROGENIC ANAEMIA
     Dosage: 150 MUG, QWK
     Route: 065
     Dates: start: 201703
  12. COREG [Concomitant]
     Active Substance: CARVEDILOL
     Dosage: 25 MG, BID

REACTIONS (1)
  - Therapy non-responder [Not Recovered/Not Resolved]
